FAERS Safety Report 16870389 (Version 1)
Quarter: 2019Q3

REPORT INFORMATION
  Report Type: Spontaneous
  Country: US (occurrence: US)
  Receive Date: 20190930
  Receipt Date: 20190930
  Transmission Date: 20191005
  Serious: No
  Sender: FDA-Public Use
  Company Number: US-ROMARKLABS-2019-US-000091

PATIENT
  Age: 36 Year
  Sex: Female

DRUGS (33)
  1. DIFLUCAN [Concomitant]
     Active Substance: FLUCONAZOLE
     Indication: FUNGAL INFECTION
     Dosage: 2 TIMES PER WEEK
     Route: 048
     Dates: start: 20190411, end: 20190530
  2. MILK THISTLE TEA [Concomitant]
     Indication: NUTRITIONAL SUPPLEMENTATION
     Route: 048
     Dates: start: 20190530, end: 201906
  3. ACZ NANO [Concomitant]
     Indication: PRODUCT USED FOR UNKNOWN INDICATION
     Dosage: DAILY
     Route: 048
  4. LIPOSOMAL GLUTATHIAONE [Concomitant]
     Indication: NUTRITIONAL SUPPLEMENTATION
     Dosage: 1 TSP DAILY
     Route: 048
  5. ARGENTYN 23 NASAL SPRAY [Concomitant]
     Indication: PRODUCT USED FOR UNKNOWN INDICATION
     Route: 045
  6. OPTIMAG NEURO [Concomitant]
     Indication: NUTRITIONAL SUPPLEMENTATION
     Dosage: TWICE DAILY
     Route: 048
  7. PROGESTERONE. [Concomitant]
     Active Substance: PROGESTERONE
     Indication: PRODUCT USED FOR UNKNOWN INDICATION
     Dosage: 10 CLICKS (7.5 MG) DAILY FOR 12 DAYS
     Route: 062
     Dates: start: 20190613
  8. CORTISOL [Concomitant]
     Active Substance: HYDROCORTISONE
     Indication: PRODUCT USED FOR UNKNOWN INDICATION
     Dosage: TWICE DAILY
  9. IODORAL [Concomitant]
     Active Substance: IODINE\POTASSIUM IODIDE
     Indication: NUTRITIONAL SUPPLEMENTATION
     Dosage: DAILY
     Route: 048
  10. METHYL B12 SL [Concomitant]
     Dosage: DAILY
     Route: 060
  11. OLIVE/COCONUT OIL [Concomitant]
     Indication: NUTRITIONAL SUPPLEMENTATION
     Dosage: 1 TBSP DAILY
     Route: 048
  12. PROBIOTIC 225 [Concomitant]
     Indication: NUTRITIONAL SUPPLEMENTATION
     Dosage: THREE TIMES DAILY
     Route: 048
  13. SERENITY PM [Concomitant]
     Indication: PRODUCT USED FOR UNKNOWN INDICATION
     Dosage: 4 AT BEDTIME
     Route: 048
     Dates: start: 20190530
  14. ARMOUR THYROID [Concomitant]
     Active Substance: THYROID, PORCINE
     Dosage: 30 MG DAILY
     Route: 048
  15. INFLAMMACORE [Concomitant]
     Indication: NUTRITIONAL SUPPLEMENTATION
     Dosage: 1 SCOOP DAILY
     Route: 048
  16. ESTRODIM [Concomitant]
     Indication: PRODUCT USED FOR UNKNOWN INDICATION
     Route: 048
     Dates: start: 20190530
  17. GLUCERNA TRIPLE CARE [Concomitant]
     Indication: PRODUCT USED FOR UNKNOWN INDICATION
     Dosage: 2 SCOOPS
     Route: 048
     Dates: start: 20190530, end: 201906
  18. ALLEGRA [Concomitant]
     Active Substance: FEXOFENADINE HYDROCHLORIDE
     Indication: PRODUCT USED FOR UNKNOWN INDICATION
     Dosage: ONCE DAILY
     Route: 048
  19. ALINIA [Suspect]
     Active Substance: NITAZOXANIDE
     Indication: PRODUCT USED FOR UNKNOWN INDICATION
     Dosage: 1 TABLET TWICE DAILY
     Route: 048
     Dates: start: 20190411, end: 20190620
  20. VITAMIN B-2 [Concomitant]
     Indication: NUTRITIONAL SUPPLEMENTATION
     Dosage: DAILY
     Route: 048
  21. ENERGY MULTI-PLEX [Concomitant]
     Indication: NUTRITIONAL SUPPLEMENTATION
     Route: 048
     Dates: start: 20190530
  22. T-150 [Concomitant]
     Indication: PRODUCT USED FOR UNKNOWN INDICATION
     Route: 048
     Dates: start: 20190530
  23. MICROBINATE [Concomitant]
     Indication: NUTRITIONAL SUPPLEMENTATION
     Route: 048
  24. PROGESTERONE. [Concomitant]
     Active Substance: PROGESTERONE
     Indication: PRODUCT USED FOR UNKNOWN INDICATION
     Dosage: 3 CLICKS (2.25 MG) DAILY FOR 14 DAYS
     Route: 062
     Dates: start: 20190530, end: 20190612
  25. OMEGA MONPURE 1300 EC [Concomitant]
     Indication: NUTRITIONAL SUPPLEMENTATION
     Dosage: DAILY
     Route: 048
  26. ^BEGIM^ [Concomitant]
     Indication: PRODUCT USED FOR UNKNOWN INDICATION
  27. HELIGUARD [Concomitant]
     Indication: NUTRITIONAL SUPPLEMENTATION
     Route: 048
  28. MEDCAPS DPO [Concomitant]
     Indication: NUTRITIONAL SUPPLEMENTATION
     Dosage: TWICE DAILY
     Route: 048
  29. MONTELUKAST [Concomitant]
     Active Substance: MONTELUKAST SODIUM
     Indication: PRODUCT USED FOR UNKNOWN INDICATION
     Dosage: DAILY
     Route: 048
  30. PINK SEA SALT [Concomitant]
     Indication: NUTRITIONAL SUPPLEMENTATION
     Route: 048
  31. LIVCO [Concomitant]
     Indication: NUTRITIONAL SUPPLEMENTATION
     Route: 048
     Dates: start: 20190530
  32. MULTIVITAMIN [Concomitant]
     Active Substance: VITAMINS
     Indication: NUTRITIONAL SUPPLEMENTATION
     Route: 048
     Dates: start: 20190530
  33. COQ10 [Concomitant]
     Active Substance: UBIDECARENONE
     Indication: NUTRITIONAL SUPPLEMENTATION
     Dosage: DAILY
     Route: 048

REACTIONS (4)
  - Aspartate aminotransferase increased [Recovered/Resolved]
  - Scleral discolouration [Recovering/Resolving]
  - Yellow skin [Recovering/Resolving]
  - Alanine aminotransferase increased [Recovered/Resolved]

NARRATIVE: CASE EVENT DATE: 20190620
